FAERS Safety Report 18225884 (Version 1)
Quarter: 2020Q3

REPORT INFORMATION
  Report Type: Spontaneous
  Country: GB (occurrence: GB)
  Receive Date: 20200903
  Receipt Date: 20200903
  Transmission Date: 20201103
  Serious: Yes (Life-Threatening)
  Sender: FDA-Public Use
  Company Number: GB-TEVA-2020-GB-1822365

PATIENT
  Age: 20 Year
  Sex: Female
  Weight: 69.8 kg

DRUGS (3)
  1. ACICLOVIR [Suspect]
     Active Substance: ACYCLOVIR
     Indication: HERPES SIMPLEX
     Dosage: 1200 MG FOR 5 DAYS
     Route: 048
     Dates: start: 20200723, end: 20200728
  2. AMOXICILLIN. [Suspect]
     Active Substance: AMOXICILLIN
     Dosage: 500 MG FOR 7 DAYS
     Route: 048
     Dates: start: 20200719, end: 20200726
  3. ULIPRISTAL ACETATE [Concomitant]
     Active Substance: ULIPRISTAL ACETATE

REACTIONS (3)
  - Rash [Recovered/Resolved]
  - Pharyngeal swelling [Recovered/Resolved]
  - Swelling face [Recovered/Resolved]

NARRATIVE: CASE EVENT DATE: 20200725
